FAERS Safety Report 8571377-0 (Version None)
Quarter: 2012Q3

REPORT INFORMATION
  Report Type: 
  Country: None (occurrence: None)
  Receive Date: 20120806
  Receipt Date: 20120802
  Transmission Date: 20120928
  Serious: Yes (Death)
  Sender: FDA-Public Use
  Company Number: DK-JNJFOC-20120801320

PATIENT

DRUGS (23)
  1. VINCRISTINE [Suspect]
     Indication: MANTLE CELL LYMPHOMA
     Dosage: DAY 1; CYCLE 3
     Route: 065
  2. VINCRISTINE [Suspect]
     Dosage: DAY 1; CYCLE 1
     Route: 065
  3. CYTARABINE [Suspect]
     Dosage: 2/3 G/M2; FOUR 3H INFUSIONS/CYCLE; CYCLE 2
     Route: 042
  4. RITUXIMAB [Suspect]
     Dosage: DAY 1 CYCLE 5
     Route: 065
  5. DOXORUBICIN HCL [Suspect]
     Indication: MANTLE CELL LYMPHOMA
     Dosage: DAY 1; CYCLE 1
     Route: 042
  6. CYCLOPHOSPHAMIDE [Suspect]
     Dosage: DAY 2-5; BEAC REGIMEN
     Route: 065
  7. CYCLOPHOSPHAMIDE [Suspect]
     Dosage: DAY 1; CYCLE 1; CHOP
     Route: 065
  8. CARMUSTINE [Suspect]
     Indication: MANTLE CELL LYMPHOMA
     Dosage: ON DAY 1; BEAM/C REGIMEN
     Route: 065
  9. MELPHALAN HYDROCHLORIDE [Suspect]
     Indication: MANTLE CELL LYMPHOMA
     Dosage: DAY 6; BEAM REGIMEN
     Route: 065
  10. DOXORUBICIN HCL [Suspect]
     Dosage: DAY 1; CYCLE 5
     Route: 042
  11. CYCLOPHOSPHAMIDE [Suspect]
     Indication: MANTLE CELL LYMPHOMA
     Dosage: DAY 1; CYCLE 3; CHOP
     Route: 065
  12. PREDNISOLONE [Suspect]
     Indication: MANTLE CELL LYMPHOMA
     Dosage: DAY 1-5; CYCLE 1
     Route: 065
  13. CYTARABINE [Suspect]
     Indication: MANTLE CELL LYMPHOMA
     Dosage: 2/3 G/M2 ;FOUR 3H INFUSIONS/CYCLE; CYCLE 4
     Route: 042
  14. CYCLOPHOSPHAMIDE [Suspect]
     Dosage: DAY 1; CYCLE 5; CHOP
     Route: 065
  15. RITUXIMAB [Suspect]
     Dosage: GIVEN ON DAY 1 AND ON DAY 9; CYCLE 6
     Route: 065
  16. VINCRISTINE [Suspect]
     Dosage: DAY 1; CYCLE 5
     Route: 065
  17. CYTARABINE [Suspect]
     Dosage: 2/3 MG/M2; FOUR 3H INFUSIONS/CYCLE; CYCLE 6
     Route: 042
  18. CYTARABINE [Suspect]
     Dosage: DAY 2-5 BEAM/BEAC REGIMEN
     Route: 042
  19. RITUXIMAB [Suspect]
     Indication: MANTLE CELL LYMPHOMA
     Dosage: DAY 1 FROM CYCLE 4
     Route: 065
  20. PREDNISOLONE [Suspect]
     Dosage: DAY 1-5; CYCLE 3
     Route: 065
  21. ETOPOSIDE [Suspect]
     Indication: MANTLE CELL LYMPHOMA
     Dosage: ON DAYS 2-5; BEAM/C REGIMEN
     Route: 065
  22. DOXORUBICIN HCL [Suspect]
     Dosage: DAY 1; CYCLE 3
     Route: 042
  23. PREDNISOLONE [Suspect]
     Dosage: DAY 1-5; CYCLE 5
     Route: 065

REACTIONS (1)
  - CARDIAC FAILURE [None]
